FAERS Safety Report 6736584-8 (Version None)
Quarter: 2010Q2

REPORT INFORMATION
  Report Type: 
  Country: None (occurrence: None)
  Receive Date: 20100521
  Receipt Date: 20100513
  Transmission Date: 20101027
  Serious: No
  Sender: FDA-Public Use
  Company Number: B0624183A

PATIENT
  Sex: Female
  Weight: 51 kg

DRUGS (12)
  1. RELENZA [Suspect]
     Indication: INFLUENZA
     Route: 055
     Dates: start: 20100105
  2. CHINESE MEDICINE [Concomitant]
     Indication: INFLUENZA
     Dosage: 7.5MG PER DAY
     Route: 048
     Dates: start: 20100105, end: 20100108
  3. UNKNOWN DRUG [Concomitant]
  4. SELBEX [Concomitant]
     Route: 065
     Dates: start: 20090807, end: 20090814
  5. LAXOBERON [Concomitant]
     Indication: CONSTIPATION
     Route: 048
     Dates: start: 20090831
  6. LAXOBERON [Concomitant]
     Route: 048
     Dates: start: 20100210
  7. CHINESE MEDICINE [Concomitant]
     Indication: VOMITING
     Dates: start: 20090917, end: 20090930
  8. CALONAL [Concomitant]
     Indication: HEADACHE
     Dates: start: 20090917
  9. OXICONAZOLE NITRATE [Concomitant]
     Indication: CANDIDIASIS
     Dosage: 600MG PER DAY
     Route: 067
     Dates: start: 20091024
  10. CHINESE MEDICINE [Concomitant]
     Route: 048
     Dates: start: 20100324
  11. OXICONAZOLE NITRATE [Concomitant]
     Dosage: 600MG PER DAY
     Route: 067
     Dates: start: 20100226
  12. CLOTRIMAZOLE [Concomitant]
     Indication: CANDIDIASIS
     Route: 061
     Dates: start: 20100226

REACTIONS (3)
  - DELIVERY [None]
  - DRUG EXPOSURE DURING PREGNANCY [None]
  - VOMITING [None]
